FAERS Safety Report 7691517-5 (Version None)
Quarter: 2011Q3

REPORT INFORMATION
  Report Type: 
  Country: None (occurrence: None)
  Receive Date: 20110817
  Receipt Date: 20110817
  Transmission Date: 20111222
  Serious: Yes (Hospitalization)
  Sender: FDA-Public Use
  Company Number: None

PATIENT
  Sex: Female
  Weight: 80.6 kg

DRUGS (3)
  1. PEGFILGRASTUM (NEULASTA) [Suspect]
     Dosage: 6 MG
  2. TAXOL [Suspect]
     Dosage: 325 MG
  3. IFOSFAMIDE [Suspect]
     Dosage: 8940 MG

REACTIONS (2)
  - DEEP VEIN THROMBOSIS [None]
  - ARTHRALGIA [None]
